FAERS Safety Report 7056036-8 (Version None)
Quarter: 2010Q4

REPORT INFORMATION
  Report Type: 
  Country: None (occurrence: None)
  Receive Date: 20101021
  Receipt Date: 20101014
  Transmission Date: 20110411
  Serious: Yes (Death, Life-Threatening)
  Sender: FDA-Public Use
  Company Number: B0672873A

PATIENT
  Sex: Male

DRUGS (7)
  1. SERETIDE [Suspect]
     Indication: CHRONIC OBSTRUCTIVE PULMONARY DISEASE
     Dosage: 500MCG PER DAY
     Route: 055
     Dates: start: 20081119
  2. BLINDED STUDY MEDICATION [Suspect]
     Indication: CHRONIC OBSTRUCTIVE PULMONARY DISEASE
     Dosage: 2IUAX PER DAY
     Route: 048
     Dates: start: 20100114
  3. SPIRIVA [Concomitant]
     Indication: CHRONIC OBSTRUCTIVE PULMONARY DISEASE
     Dosage: 18MCG PER DAY
     Route: 055
  4. ACINON [Concomitant]
     Dosage: 300MG PER DAY
     Route: 048
  5. MUCOSOLVAN [Concomitant]
     Indication: CHRONIC OBSTRUCTIVE PULMONARY DISEASE
     Dosage: 45MG PER DAY
     Route: 048
  6. UNKNOWN DRUG [Concomitant]
     Route: 065
  7. MAGMITT [Concomitant]
     Indication: CONSTIPATION
     Dosage: 500MG PER DAY
     Route: 065

REACTIONS (7)
  - C-REACTIVE PROTEIN INCREASED [None]
  - CHEST PAIN [None]
  - COUGH [None]
  - DYSPNOEA [None]
  - PNEUMONIA [None]
  - PNEUMOTHORAX [None]
  - PRODUCTIVE COUGH [None]
